FAERS Safety Report 9276033 (Version 1)
Quarter: 2012Q4

REPORT INFORMATION
  Report Type: Spontaneous
  Country: US (occurrence: None)
  Receive Date: 20121109
  Receipt Date: 20121109
  Transmission Date: 20130627
  Serious: Yes (Death)
  Sender: FDA-Public Use
  Company Number: 2012S1000430

PATIENT
  Age: 53 Year
  Sex: Female
  Weight: 52.1 kg

DRUGS (9)
  1. CUBICIN [Suspect]
     Indication: STAPHYLOCOCCUS AUREUS BACTEREMIA
     Route: 042
     Dates: start: 20090330, end: 20090428
  2. CEFEPIME [Concomitant]
  3. ALBUTEROL [Suspect]
  4. FUROSEMIDE [Concomitant]
  5. ALBUTEROL [Concomitant]
  6. FUROSEMIDE [Concomitant]
  7. HEPARIN [Concomitant]
  8. METHADONE [Concomitant]
  9. NICOTINE [Concomitant]

REACTIONS (4)
  - Endocarditis [None]
  - Pulmonary embolism [None]
  - Septic embolus [None]
  - Cerebral artery embolism [None]
